FAERS Safety Report 7965459-1 (Version None)
Quarter: 2011Q4

REPORT INFORMATION
  Report Type: 
  Country: None (occurrence: None)
  Receive Date: 20111206
  Receipt Date: 20111125
  Transmission Date: 20120403
  Serious: Yes (Hospitalization)
  Sender: FDA-Public Use
  Company Number: 1118551

PATIENT
  Age: 34 Year
  Sex: Female

DRUGS (11)
  1. CYTARABINE [Suspect]
     Indication: NON-HODGKIN'S LYMPHOMA
     Dosage: 7200 MG MILLIGRAM(S), ,INTRAVENOUS (NOT OTHERWISE SPECIFIED)
     Route: 042
     Dates: start: 20111109, end: 20111110
  2. BACTRIM [Concomitant]
  3. METHYLPREDNISOLONE [Concomitant]
  4. LEUPROLIDE ACETATE [Concomitant]
  5. LEDERFOLIN [Concomitant]
  6. LIMICAN [Concomitant]
  7. ALLOPURINOL [Concomitant]
  8. EPREX [Concomitant]
  9. NOVOBAN [Concomitant]
  10. DECADRON [Concomitant]
  11. PANTOPRAZOLE SODIUM [Concomitant]

REACTIONS (6)
  - INTRACRANIAL PRESSURE INCREASED [None]
  - VERTIGO [None]
  - RASH [None]
  - HEADACHE [None]
  - NAUSEA [None]
  - VOMITING [None]
